FAERS Safety Report 12818922 (Version 1)
Quarter: 2016Q4

REPORT INFORMATION
  Report Type: Spontaneous
  Country: US (occurrence: US)
  Receive Date: 20161006
  Receipt Date: 20161006
  Transmission Date: 20170207
  Serious: No
  Sender: FDA-Public Use
  Company Number: US-GLAXOSMITHKLINE-US2016145071

PATIENT
  Age: 6 Year
  Sex: Male

DRUGS (1)
  1. TRANSDERM SCOP [Suspect]
     Active Substance: SCOPOLAMINE
     Indication: DROOLING
     Dosage: UNK
     Dates: start: 2013

REACTIONS (3)
  - Therapeutic response unexpected [Unknown]
  - Drug administered to patient of inappropriate age [Unknown]
  - Off label use [Unknown]
